FAERS Safety Report 10663175 (Version 1)
Quarter: 2014Q4

REPORT INFORMATION
  Report Type: Spontaneous
  Country: US (occurrence: US)
  Receive Date: 20141218
  Receipt Date: 20141218
  Transmission Date: 20150529
  Serious: No
  Sender: FDA-Public Use
  Company Number: US-GALDERMA-US14004228

PATIENT
  Age: 42 Year
  Sex: Male

DRUGS (4)
  1. KETOCONAZOLE 2% SHAMPOO [Concomitant]
     Indication: THERAPEUTIC SKIN CARE TOPICAL
     Dosage: 2%
     Route: 061
  2. NEUTROGENA LIQUID CLEANSER [Concomitant]
     Indication: THERAPEUTIC SKIN CARE TOPICAL
     Route: 061
  3. MIRVASO [Suspect]
     Active Substance: BRIMONIDINE TARTRATE
     Indication: ERYTHEMA
     Dosage: 0.33%
     Route: 061
     Dates: start: 20141102, end: 20141103
  4. PROMISEB (ANTISEBORRHEIC) 2% CREAM [Concomitant]
     Dosage: 2%
     Route: 061
     Dates: start: 20141001, end: 20141103

REACTIONS (10)
  - Flushing [Recovering/Resolving]
  - Product use issue [Recovered/Resolved]
  - Depression [Unknown]
  - Condition aggravated [Recovering/Resolving]
  - Emotional distress [Recovered/Resolved]
  - Rash macular [Recovering/Resolving]
  - Rebound effect [Recovering/Resolving]
  - Activities of daily living impaired [Unknown]
  - Erythema [Recovering/Resolving]
  - Pallor [Recovered/Resolved]

NARRATIVE: CASE EVENT DATE: 20141102
